FAERS Safety Report 5928554-4 (Version None)
Quarter: 2008Q4

REPORT INFORMATION
  Report Type: 
  Country: None (occurrence: None)
  Receive Date: 20081023
  Receipt Date: 20081013
  Transmission Date: 20090506
  Serious: Yes (Hospitalization)
  Sender: FDA-Public Use
  Company Number: US-WATSON-2008-06097

PATIENT
  Age: 24 Year
  Sex: Female

DRUGS (3)
  1. LIDOCAINE 1% W/ EPINEPHRINE 1:200,000 [Suspect]
     Indication: LOCAL ANAESTHESIA
     Dosage: 2 ML, 1.5%
     Route: 008
  2. FENTANYL CITRATE [Suspect]
     Indication: LOCAL ANAESTHESIA
     Dosage: 2 MCG/ML,
     Route: 008
  3. BUPIVACAINE [Suspect]
     Indication: LOCAL ANAESTHESIA
     Dosage: 10 ML, 0.125%
     Route: 008

REACTIONS (1)
  - TACHYPHYLAXIS [None]
